FAERS Safety Report 5421135-0 (Version None)
Quarter: 2007Q3

REPORT INFORMATION
  Report Type: 
  Country: None (occurrence: None)
  Receive Date: 20070821
  Receipt Date: 20070814
  Transmission Date: 20080115
  Serious: Yes (Other)
  Sender: FDA-Public Use
  Company Number: US-ABBOTT-07P-163-0378046-00

PATIENT

DRUGS (3)
  1. CYCLOSPORINE [Suspect]
     Indication: IMMUNOSUPPRESSION
     Dosage: NOT REPORTED
  2. EFALIZUMAB [Suspect]
     Indication: DRUG USE FOR UNKNOWN INDICATION
     Dosage: NOT REPORTED
  3. PREDNISONE TAB [Suspect]
     Indication: IMMUNOSUPPRESSION
     Dosage: NOT REPORTED

REACTIONS (1)
  - PERITONITIS [None]
